FAERS Safety Report 22181266 (Version 1)
Quarter: 2023Q2

REPORT INFORMATION
  Report Type: Spontaneous
  Country: US (occurrence: None)
  Receive Date: 20230405
  Receipt Date: 20230405
  Transmission Date: 20230721
  Serious: Yes (Hospitalization)
  Sender: FDA-Public Use
  Company Number: None

PATIENT
  Sex: Female

DRUGS (20)
  1. LENALIDOMIDE [Suspect]
     Active Substance: LENALIDOMIDE
     Indication: Plasma cell myeloma
     Dosage: FREQUENCY : DAILY;?
     Route: 048
     Dates: start: 20230310
  2. ACYCLOVIR [Concomitant]
     Active Substance: ACYCLOVIR
  3. AMLODIPINE [Concomitant]
     Active Substance: AMLODIPINE BESYLATE
  4. ASPIRIN LOW TAB 81MG EC [Concomitant]
  5. CYMBALTA CAP 60MG [Concomitant]
  6. DEXAMETHASONE [Concomitant]
     Active Substance: DEXAMETHASONE
  7. DIPHENHYDRAM CAP 25MG [Concomitant]
  8. EPIPEN 2-PAK INJ 0.3MG [Concomitant]
  9. FAMOTIDINE TAB 10MG [Concomitant]
  10. FEXOFENADINE TAB 60MG [Concomitant]
  11. FLONASE ALGY SPR 50MCG [Concomitant]
  12. ACETAMINOPHEN\HYDROCODONE [Concomitant]
     Active Substance: ACETAMINOPHEN\HYDROCODONE
  13. MAG-OXIDE TAB 200MG [Concomitant]
  14. MIRENA IUD SYSTEM [Concomitant]
  15. MULTIVITAMIN TAB WOMENS [Concomitant]
  16. NAPROXEN TAB 250MG [Concomitant]
  17. PANTOPRAZOLE TAB 40MG [Concomitant]
  18. TYLENOL TAB 500MG [Concomitant]
  19. VOL TAREN GEL 1% [Concomitant]
  20. ZOLEDRONIC ACID [Concomitant]
     Active Substance: ZOLEDRONIC ACID

REACTIONS (1)
  - Pyrexia [None]
